FAERS Safety Report 17289173 (Version 3)
Quarter: 2020Q1

REPORT INFORMATION
  Report Type: Spontaneous
  Country: JP (occurrence: JP)
  Receive Date: 20200120
  Receipt Date: 20200219
  Transmission Date: 20200409
  Serious: Yes (Hospitalization)
  Sender: FDA-Public Use
  Company Number: JP-BAXTER-2020BAX001309

PATIENT
  Age: 8 Decade
  Sex: Female

DRUGS (1)
  1. DOXIL [Suspect]
     Active Substance: DOXORUBICIN HYDROCHLORIDE
     Indication: OVARIAN CANCER RECURRENT
     Dosage: 11 CYCLES
     Route: 042
     Dates: start: 2017

REACTIONS (2)
  - Bone marrow failure [Unknown]
  - Bacteraemia [Unknown]

NARRATIVE: CASE EVENT DATE: 2018
